FAERS Safety Report 17809188 (Version 1)
Quarter: 2020Q2

REPORT INFORMATION
  Report Type: Report from Study
  Country: US (occurrence: US)
  Receive Date: 20200520
  Receipt Date: 20200520
  Transmission Date: 20200714
  Serious: Yes (Hospitalization, Other)
  Sender: FDA-Public Use
  Company Number: US-BIOMARINAP-US-2020-130215

PATIENT
  Age: 2 Year
  Sex: Female
  Weight: 13.7 kg

DRUGS (3)
  1. BENADRYL [Concomitant]
     Active Substance: DIPHENHYDRAMINE HYDROCHLORIDE
     Indication: PREMEDICATION
     Dosage: 1.25 MILLIGRAM/KILOGRAM
  2. NAGLAZYME [Suspect]
     Active Substance: GALSULFASE
     Indication: MUCOPOLYSACCHARIDOSIS VI
     Dosage: 1 MILLIGRAM/KILOGRAM, QW
     Route: 042
     Dates: start: 20160603
  3. ACETAMINOPHEN. [Concomitant]
     Active Substance: ACETAMINOPHEN
     Indication: PREMEDICATION
     Dosage: 15 MILLIGRAM/KILOGRAM

REACTIONS (1)
  - Cervical cord compression [Recovered/Resolved]

NARRATIVE: CASE EVENT DATE: 20190105
